FAERS Safety Report 15923477 (Version 1)
Quarter: 2019Q1

REPORT INFORMATION
  Report Type: Spontaneous
  Country: US (occurrence: US)
  Receive Date: 20190206
  Receipt Date: 20190206
  Transmission Date: 20190417
  Serious: Yes (Death, Hospitalization)
  Sender: FDA-Public Use
  Company Number: None

PATIENT
  Age: 78 Year
  Sex: Male
  Weight: 72 kg

DRUGS (1)
  1. CAPECITABINE 500 MG [Suspect]
     Active Substance: CAPECITABINE
     Indication: BILE DUCT CANCER
     Dosage: ?          QUANTITY:112 TABLET(S);?
     Route: 048
     Dates: start: 20181117, end: 20181126

REACTIONS (5)
  - Rash generalised [None]
  - Vomiting [None]
  - Dihydropyrimidine dehydrogenase deficiency [None]
  - Diarrhoea [None]
  - Oral mucosal blistering [None]

NARRATIVE: CASE EVENT DATE: 20181123
